FAERS Safety Report 7357935-X (Version None)
Quarter: 2011Q1

REPORT INFORMATION
  Report Type: 
  Country: None (occurrence: None)
  Receive Date: 20110317
  Receipt Date: 20110220
  Transmission Date: 20110831
  Serious: No
  Sender: FDA-Public Use
  Company Number: US-B.I. PHARMACEUTICALS,INC./RIDGEFIELD-2011-BP-06404BP

PATIENT
  Sex: Female

DRUGS (8)
  1. ZETIA [Concomitant]
     Indication: BLOOD CHOLESTEROL DECREASED
     Dosage: 10 MG
     Route: 048
  2. UNSPECIFIED VITAMINS [Concomitant]
     Route: 048
  3. ATACAND [Concomitant]
     Indication: HYPERTENSION
     Route: 048
  4. METOPROLOL [Concomitant]
     Indication: CARDIAC DISORDER
     Dosage: 37.5 MG
     Route: 048
     Dates: start: 20100701
  5. PRADAXA [Suspect]
     Indication: ATRIAL FIBRILLATION
     Dosage: 300 MG
     Route: 048
     Dates: start: 20110217, end: 20110220
  6. MULTIVITAMIN [Concomitant]
     Indication: MACULAR DEGENERATION
     Route: 048
  7. CLARITIN [Concomitant]
     Dosage: 10 MG
     Route: 048
  8. FISH OIL [Concomitant]
     Indication: MACULAR DEGENERATION
     Route: 048

REACTIONS (3)
  - ABDOMINAL DISCOMFORT [None]
  - DIZZINESS [None]
  - FOREIGN BODY [None]
